FAERS Safety Report 7105008-3 (Version None)
Quarter: 2010Q4

REPORT INFORMATION
  Report Type: 
  Country: None (occurrence: None)
  Receive Date: 20101116
  Receipt Date: 20101101
  Transmission Date: 20110411
  Serious: Yes (Other)
  Sender: FDA-Public Use
  Company Number: TW-JNJFOC-20101105001

PATIENT
  Sex: Female
  Weight: 68.6 kg

DRUGS (4)
  1. RISPERDAL [Suspect]
     Indication: ILL-DEFINED DISORDER
     Route: 048
  2. OLANZAPINE [Suspect]
     Indication: ILL-DEFINED DISORDER
     Route: 065
  3. PROPRANOLOL [Suspect]
     Indication: ILL-DEFINED DISORDER
     Route: 065
  4. LITHONATE [Suspect]
     Indication: ILL-DEFINED DISORDER
     Route: 065

REACTIONS (1)
  - EYE DISORDER [None]
